FAERS Safety Report 9355426 (Version 1)
Quarter: 2013Q2

REPORT INFORMATION
  Report Type: Spontaneous
  Country: US (occurrence: None)
  Receive Date: 20130618
  Receipt Date: 20130618
  Transmission Date: 20140414
  Serious: Yes (Hospitalization)
  Sender: FDA-Public Use
  Company Number: None

PATIENT
  Age: 77 Year
  Sex: Male
  Weight: 100.8 kg

DRUGS (2)
  1. DEXAMETHASONE [Suspect]
     Indication: NAUSEA
     Route: 042
     Dates: start: 20121206, end: 20130328
  2. PREDNISONE [Suspect]
     Indication: NAUSEA
     Route: 048
     Dates: start: 20121206, end: 20130328

REACTIONS (7)
  - Abdominal pain upper [None]
  - Hypophagia [None]
  - Diarrhoea [None]
  - Asthenia [None]
  - Bedridden [None]
  - Nausea [None]
  - Vomiting [None]
